FAERS Safety Report 8103123-9 (Version None)
Quarter: 2012Q1

REPORT INFORMATION
  Report Type: 
  Country: None (occurrence: None)
  Receive Date: 20120201
  Receipt Date: 20120123
  Transmission Date: 20120608
  Serious: Yes (Hospitalization)
  Sender: FDA-Public Use
  Company Number: US-ACTELION-A-US2012-60193

PATIENT

DRUGS (4)
  1. EPOPROSTENOL SODIUM [Suspect]
     Indication: PULMONARY ARTERIAL HYPERTENSION
     Dosage: 45 NG/KG, PER MIN
     Route: 042
  2. OXYGEN [Concomitant]
  3. TRACLEER [Concomitant]
     Indication: PULMONARY ARTERIAL HYPERTENSION
  4. COUMADIN [Concomitant]

REACTIONS (2)
  - ABDOMINAL PAIN [None]
  - RENAL FAILURE ACUTE [None]
